FAERS Safety Report 8988475 (Version 1)
Quarter: 2012Q4

REPORT INFORMATION
  Report Type: Spontaneous
  Country: GB (occurrence: None)
  Receive Date: 20121218
  Receipt Date: 20121218
  Transmission Date: 20130627
  Serious: Yes (Other)
  Sender: FDA-Public Use
  Company Number: GER/UKI/12/0027062

PATIENT
  Age: 59 Year
  Sex: Female
  Weight: 117 kg

DRUGS (5)
  1. CLOPIDOGREL [Suspect]
  2. CITALOPRAM [Concomitant]
  3. OLANZAPINE [Concomitant]
  4. THIAMINE [Concomitant]
  5. VITAMIN B [Concomitant]

REACTIONS (2)
  - Rash maculo-papular [None]
  - Eosinophil count increased [None]
